FAERS Safety Report 8080438-4 (Version None)
Quarter: 2012Q1

REPORT INFORMATION
  Report Type: 
  Country: None (occurrence: None)
  Receive Date: 20120130
  Receipt Date: 20120125
  Transmission Date: 20120608
  Serious: Yes (Life-Threatening)
  Sender: FDA-Public Use
  Company Number: GB-PFIZER INC-2012021310

PATIENT
  Age: 44 Year
  Sex: Female
  Weight: 85 kg

DRUGS (7)
  1. CELECOXIB [Suspect]
     Dosage: 200 MG, 1X/DAY
     Route: 048
     Dates: start: 20110902
  2. ESCITALOPRAM [Concomitant]
     Dosage: UNK
  3. PROCHLORPERAZINE [Concomitant]
     Dosage: UNK
  4. TRAMADOL [Concomitant]
     Dosage: UNK
  5. ESTRADIOL [Suspect]
     Dosage: 2 MG, UNK
     Dates: start: 20120109
  6. OMEPRAZOLE [Concomitant]
     Dosage: UNK
  7. ESTRADIOL [Suspect]
     Dosage: 1 MG, UNK
     Dates: start: 20111010, end: 20120108

REACTIONS (1)
  - EMBOLIC STROKE [None]
